FAERS Safety Report 20588770 (Version 1)
Quarter: 2022Q1

REPORT INFORMATION
  Report Type: Spontaneous
  Country: AU (occurrence: None)
  Receive Date: 20220314
  Receipt Date: 20220314
  Transmission Date: 20220423
  Serious: Yes (Other)
  Sender: FDA-Public Use
  Company Number: AU-MICRO LABS LIMITED-ML2022-00789

PATIENT
  Age: 80 Year
  Sex: Male

DRUGS (1)
  1. TRAVOPROST [Suspect]
     Active Substance: TRAVOPROST
     Indication: Normal tension glaucoma
     Dosage: 0.004% DROPS AT NIGHT TO BOTH EYES
     Route: 047

REACTIONS (1)
  - Macular detachment [Recovered/Resolved]
